FAERS Safety Report 8984430 (Version 2)
Quarter: 2013Q1

REPORT INFORMATION
  Report Type: Spontaneous
  Country: JP (occurrence: None)
  Receive Date: 20121213
  Receipt Date: 20130103
  Transmission Date: 20140127
  Serious: Yes (Hospitalization)
  Sender: FDA-Public Use
  Company Number: TCI2012A06942

PATIENT
  Age: 30 Year
  Sex: Male

DRUGS (2)
  1. TAKEPRON [Suspect]
     Indication: GASTROOESOPHAGEAL REFLUX DISEASE
     Route: 048
     Dates: start: 201207, end: 20121125
  2. GASMOTIN (MOSAPRIDE CITRATE) [Concomitant]

REACTIONS (4)
  - Respiratory acidosis [None]
  - Metabolic acidosis [None]
  - Carbon dioxide increased [None]
  - Blood bicarbonate increased [None]
